FAERS Safety Report 10340565 (Version 1)
Quarter: 2014Q3

REPORT INFORMATION
  Report Type: Report from Study
  Country: US (occurrence: US)
  Receive Date: 20140724
  Receipt Date: 20140724
  Transmission Date: 20150326
  Serious: Yes (Other)
  Sender: FDA-Public Use
  Company Number: US-MYLANLABS-2014S1017799

PATIENT
  Sex: Male

DRUGS (2)
  1. AMNESTEEM [Suspect]
     Active Substance: ISOTRETINOIN
     Dates: start: 2014, end: 2014
  2. MYORISAN [Suspect]
     Active Substance: ISOTRETINOIN
     Dates: start: 2014, end: 2014

REACTIONS (1)
  - Neoplasm progression [Not Recovered/Not Resolved]
